FAERS Safety Report 11217721 (Version 1)
Quarter: 2015Q2

REPORT INFORMATION
  Report Type: Spontaneous
  Country: US (occurrence: US)
  Receive Date: 20150625
  Receipt Date: 20150625
  Transmission Date: 20150821
  Serious: No
  Sender: FDA-Public Use
  Company Number: US-ASTRAZENECA-2015SE57005

PATIENT
  Age: 15353 Day
  Sex: Female
  Weight: 112.5 kg

DRUGS (2)
  1. MOVANTIK [Suspect]
     Active Substance: NALOXEGOL OXALATE
     Indication: CONSTIPATION
     Route: 048
     Dates: start: 20150607, end: 20150608
  2. NARCOTICS [Concomitant]
     Active Substance: UNSPECIFIED INGREDIENT

REACTIONS (7)
  - Muscle spasms [Not Recovered/Not Resolved]
  - Constipation [Not Recovered/Not Resolved]
  - Stab wound [Not Recovered/Not Resolved]
  - Abdominal distension [Not Recovered/Not Resolved]
  - Abdominal discomfort [Not Recovered/Not Resolved]
  - Diarrhoea [Not Recovered/Not Resolved]
  - Abdominal pain [Not Recovered/Not Resolved]

NARRATIVE: CASE EVENT DATE: 20150607
